FAERS Safety Report 5566422-0 (Version None)
Quarter: 2007Q4

REPORT INFORMATION
  Report Type: 
  Country: None (occurrence: None)
  Receive Date: 20071219
  Receipt Date: 20071217
  Transmission Date: 20080405
  Serious: Yes (Other)
  Sender: FDA-Public Use
  Company Number: DEWYE536415NOV06

PATIENT
  Age: 75 Year
  Sex: Male

DRUGS (9)
  1. TREVILOR [Suspect]
     Dosage: 37.5 MG
     Route: 048
     Dates: start: 20060731, end: 20060810
  2. TREVILOR [Interacting]
     Dosage: 75 MG
     Route: 048
     Dates: start: 20060811, end: 20060817
  3. TREVILOR [Interacting]
     Dosage: 150 MG
     Route: 048
     Dates: start: 20060818, end: 20060824
  4. TREVILOR [Interacting]
     Dosage: 225 MG
     Route: 048
     Dates: start: 20060825, end: 20060907
  5. RISPERDAL [Interacting]
     Dosage: 1 MG
     Route: 048
     Dates: start: 20060622
  6. ACETYLSALICYLIC ACID SRT [Concomitant]
     Dosage: 100 MG
     Route: 048
     Dates: start: 20060622, end: 20060904
  7. MIRTAZAPINE [Interacting]
     Dosage: 45 MG
     Route: 048
     Dates: start: 20060601, end: 20060827
  8. MIRTAZAPINE [Interacting]
     Dosage: 30 MG
     Route: 048
     Dates: start: 20060828, end: 20060902
  9. MIRTAZAPINE [Interacting]
     Dosage: 15 MG
     Route: 048
     Dates: start: 20060903, end: 20060905

REACTIONS (3)
  - CONDITION AGGRAVATED [None]
  - DRUG INTERACTION [None]
  - HEPATIC ENZYME INCREASED [None]
